FAERS Safety Report 10341221 (Version 2)
Quarter: 2014Q3

REPORT INFORMATION
  Report Type: Spontaneous
  Country: IL (occurrence: IL)
  Receive Date: 20140725
  Receipt Date: 20140806
  Transmission Date: 20150326
  Serious: Yes (Hospitalization, Other)
  Sender: FDA-Public Use
  Company Number: IL-ROCHE-1440380

PATIENT
  Age: 66 Year
  Sex: Female

DRUGS (16)
  1. EZETROL [Concomitant]
     Active Substance: EZETIMIBE
  2. MABTHERA [Suspect]
     Active Substance: RITUXIMAB
     Route: 065
     Dates: start: 201301
  3. FOLIC ACID. [Concomitant]
     Active Substance: FOLIC ACID
  4. MABTHERA [Suspect]
     Active Substance: RITUXIMAB
     Route: 065
     Dates: start: 201302
  5. PREDNISONE. [Concomitant]
     Active Substance: PREDNISONE
     Indication: B-CELL LYMPHOMA
     Route: 065
     Dates: start: 201209
  6. FAMOTIDINE. [Concomitant]
     Active Substance: FAMOTIDINE
  7. XANAGIS [Concomitant]
  8. MABTHERA [Suspect]
     Active Substance: RITUXIMAB
     Dosage: MAINTAINENCE DOSE
     Route: 065
     Dates: start: 201304
  9. VINCRISTINE [Concomitant]
     Active Substance: VINCRISTINE
     Indication: B-CELL LYMPHOMA
     Route: 065
     Dates: start: 201209
  10. KALURIL (ISRAEL) [Concomitant]
  11. MABTHERA [Suspect]
     Active Substance: RITUXIMAB
     Indication: B-CELL LYMPHOMA
     Route: 065
     Dates: start: 201209
  12. DOXORUBICIN [Concomitant]
     Active Substance: DOXORUBICIN
     Indication: B-CELL LYMPHOMA
     Route: 065
     Dates: start: 201209
  13. MICROPIRIN [Concomitant]
  14. METHOTREXATE [Concomitant]
     Active Substance: METHOTREXATE
     Indication: RHEUMATOID ARTHRITIS
  15. CYCLOPHOSPHAMIDE. [Concomitant]
     Active Substance: CYCLOPHOSPHAMIDE
     Indication: B-CELL LYMPHOMA
     Route: 065
     Dates: start: 201209
  16. CARDILOC [Concomitant]
     Active Substance: BISOPROLOL FUMARATE

REACTIONS (5)
  - Pericardial effusion [Recovering/Resolving]
  - Pleural effusion [Recovering/Resolving]
  - Atrial fibrillation [Recovering/Resolving]
  - Pleuropericarditis [Recovering/Resolving]
  - Pulmonary embolism [Recovered/Resolved]
